FAERS Safety Report 9393957 (Version 1)
Quarter: 2013Q3

REPORT INFORMATION
  Report Type: Spontaneous
  Country: US (occurrence: US)
  Receive Date: 20130710
  Receipt Date: 20130710
  Transmission Date: 20140515
  Serious: No
  Sender: FDA-Public Use
  Company Number: US-009507513-1307USA005158

PATIENT
  Age: 3 Year
  Sex: Male

DRUGS (2)
  1. CLARITIN ORAL SOLUTION [Suspect]
     Indication: PRODUCT USED FOR UNKNOWN INDICATION
     Dosage: UNK, ONCE
     Route: 048
     Dates: start: 20130626
  2. CLARITIN ORAL SOLUTION [Suspect]
     Dosage: UNK, ONCE
     Route: 048
     Dates: start: 20130627

REACTIONS (1)
  - Overdose [Unknown]
